FAERS Safety Report 6907375-X (Version None)
Quarter: 2010Q3

REPORT INFORMATION
  Report Type: 
  Country: None (occurrence: None)
  Receive Date: 20100802
  Receipt Date: 20100726
  Transmission Date: 20110219
  Serious: Yes (Life-Threatening)
  Sender: FDA-Public Use
  Company Number: 2010TJ0095

PATIENT
  Age: 20 Month
  Sex: Male

DRUGS (1)
  1. EPINEPHRINE [Suspect]
     Indication: ANAPHYLACTIC REACTION
     Dosage: 0.15 MG, AS NEEDED
     Dates: start: 20100506, end: 20100506

REACTIONS (2)
  - ANAPHYLACTIC REACTION [None]
  - MILK ALLERGY [None]
